FAERS Safety Report 16111914 (Version 1)
Quarter: 2019Q1

REPORT INFORMATION
  Report Type: Other
  Country: US (occurrence: US)
  Receive Date: 20190325
  Receipt Date: 20190325
  Transmission Date: 20190418
  Serious: Yes (Hospitalization)
  Sender: FDA-Public Use
  Company Number: US-BIOVITRUM-2019US0516

PATIENT
  Sex: Female

DRUGS (14)
  1. ZOLOFT [Concomitant]
     Active Substance: SERTRALINE HYDROCHLORIDE
  2. LISINOPRIL. [Concomitant]
     Active Substance: LISINOPRIL
  3. ZANTAC [Concomitant]
     Active Substance: RANITIDINE HYDROCHLORIDE
  4. MYCOPHENOLATE [Concomitant]
     Active Substance: MYCOPHENOLIC ACID
  5. TACROLIMUS. [Concomitant]
     Active Substance: TACROLIMUS
  6. AMBIEN [Concomitant]
     Active Substance: ZOLPIDEM TARTRATE
  7. SEROQUEL [Concomitant]
     Active Substance: QUETIAPINE FUMARATE
  8. CLONIDINE. [Concomitant]
     Active Substance: CLONIDINE
  9. KLONOPIN [Concomitant]
     Active Substance: CLONAZEPAM
  10. BUMEX [Concomitant]
     Active Substance: BUMETANIDE
  11. PHENERGAN PRN [Concomitant]
  12. KINERET [Suspect]
     Active Substance: ANAKINRA
     Route: 058
     Dates: start: 201812
  13. CYMBALTA [Concomitant]
     Active Substance: DULOXETINE HYDROCHLORIDE
  14. COLCHICINE. [Concomitant]
     Active Substance: COLCHICINE

REACTIONS (1)
  - Renal function test abnormal [Unknown]
